FAERS Safety Report 7070242-8 (Version None)
Quarter: 2010Q4

REPORT INFORMATION
  Report Type: 
  Country: None (occurrence: None)
  Receive Date: 20101028
  Receipt Date: 20101001
  Transmission Date: 20110411
  Serious: No
  Sender: FDA-Public Use
  Company Number: US-WYE-H17918310

PATIENT
  Age: 75 Year
  Sex: Female
  Weight: 64.92 kg

DRUGS (1)
  1. ADVIL [Suspect]
     Indication: BACK PAIN
     Dosage: 1 CAPSULE TWICE
     Route: 048
     Dates: start: 20100929, end: 20100930

REACTIONS (2)
  - PRURITUS [None]
  - URTICARIA [None]
